FAERS Safety Report 18256886 (Version 3)
Quarter: 2020Q4

REPORT INFORMATION
  Report Type: Spontaneous
  Country: US (occurrence: US)
  Receive Date: 20200911
  Receipt Date: 20201019
  Transmission Date: 20210113
  Serious: Yes (Other)
  Sender: FDA-Public Use
  Company Number: US-GLAXOSMITHKLINE-US2020181010

PATIENT
  Sex: Female

DRUGS (2)
  1. RYTHMOL SR [Suspect]
     Active Substance: PROPAFENONE HYDROCHLORIDE
     Indication: PRODUCT USED FOR UNKNOWN INDICATION
     Dosage: 225 MG, BID
     Route: 048
     Dates: end: 202009
  2. RYTHMOL SR [Suspect]
     Active Substance: PROPAFENONE HYDROCHLORIDE
     Dosage: 225 MG, BID
     Route: 048
     Dates: start: 20200907

REACTIONS (6)
  - Heart rate increased [Recovering/Resolving]
  - Product complaint [Unknown]
  - Atrial fibrillation [Recovering/Resolving]
  - Circumstance or information capable of leading to medication error [Unknown]
  - Hypertension [Recovering/Resolving]
  - Heart rate irregular [Recovering/Resolving]
